FAERS Safety Report 18816620 (Version 1)
Quarter: 2021Q1

REPORT INFORMATION
  Report Type: Report from Study
  Country: CN (occurrence: CN)
  Receive Date: 20210201
  Receipt Date: 20210201
  Transmission Date: 20210419
  Serious: Yes (Hospitalization, Other)
  Sender: FDA-Public Use
  Company Number: CN-TAKEDA-2020TUS060951

PATIENT
  Age: 29 Year
  Sex: Female

DRUGS (10)
  1. PONATINIB [Suspect]
     Active Substance: PONATINIB
     Dosage: 30 MILLIGRAM, QD
     Route: 048
     Dates: start: 20201216, end: 20201217
  2. DANAZOL. [Concomitant]
     Active Substance: DANAZOL
     Indication: PLATELET COUNT DECREASED
     Dosage: 100 MILLIGRAM, BID
     Route: 048
     Dates: start: 20200821, end: 20200923
  3. DANAZOL. [Concomitant]
     Active Substance: DANAZOL
     Indication: PROPHYLAXIS
     Dosage: 100 MILLIGRAM, BID
     Route: 048
     Dates: start: 20200924, end: 20201009
  4. DANAZOL. [Concomitant]
     Active Substance: DANAZOL
     Dosage: 200 MILLIGRAM, BID
     Route: 048
     Dates: start: 20201010, end: 20201104
  5. HYDROCHLOROTHIAZIDE. [Concomitant]
     Active Substance: HYDROCHLOROTHIAZIDE
     Indication: PLEURAL EFFUSION
     Dosage: 25 MILLIGRAM, BID
     Route: 048
     Dates: start: 20201203, end: 20201217
  6. DANAZOL. [Concomitant]
     Active Substance: DANAZOL
     Dosage: 200 MILLIGRAM, TID
     Route: 048
     Dates: start: 20201105, end: 20201203
  7. LEUCOGEN [Concomitant]
     Active Substance: LEUCOGEN
     Indication: PLATELET COUNT INCREASED
     Dosage: 20 MILLIGRAM, TID
     Route: 048
     Dates: start: 20201022, end: 20201217
  8. GLUCUROLACTONE [Concomitant]
     Active Substance: GLUCUROLACTONE
     Indication: TRANSAMINASES
     Dosage: 50 MILLIGRAM, BID
     Route: 048
     Dates: start: 20201105, end: 20201217
  9. PONATINIB [Suspect]
     Active Substance: PONATINIB
     Indication: CHRONIC MYELOID LEUKAEMIA
     Dosage: 30 MILLIGRAM, QD
     Route: 048
     Dates: start: 20200814, end: 20201215
  10. SPIRONOLACTONE. [Concomitant]
     Active Substance: SPIRONOLACTONE
     Indication: PLEURAL EFFUSION
     Dosage: 20 MILLIGRAM, BID
     Route: 048
     Dates: start: 20201203, end: 20201217

REACTIONS (1)
  - Myelosuppression [Recovered/Resolved]

NARRATIVE: CASE EVENT DATE: 20201216
